FAERS Safety Report 6129356-9 (Version None)
Quarter: 2009Q1

REPORT INFORMATION
  Report Type: 
  Country: None (occurrence: None)
  Receive Date: 20090324
  Receipt Date: 20090312
  Transmission Date: 20090719
  Serious: Yes (Other)
  Sender: FDA-Public Use
  Company Number: FR-WYE-H08617109

PATIENT
  Sex: Female

DRUGS (6)
  1. INIPOMP [Suspect]
     Dosage: UNKNOWN
     Route: 048
     Dates: end: 20080111
  2. ACTONEL [Suspect]
     Indication: POLYMYALGIA RHEUMATICA
     Dosage: UNKNOWN
     Route: 048
     Dates: start: 20071003, end: 20080111
  3. TARKA [Suspect]
     Indication: HYPERTENSION
     Dosage: UNKNOWN
     Route: 048
     Dates: start: 19950101, end: 20080111
  4. ALPRAZOLAM [Suspect]
     Dosage: UNKNOWN
     Route: 048
     Dates: end: 20080111
  5. ZALDIAR [Suspect]
     Dosage: UNKNOWN
     Dates: end: 20080111
  6. CORTANCYL [Concomitant]
     Indication: POLYMYALGIA RHEUMATICA
     Dosage: UNKNOWN
     Dates: start: 20071003

REACTIONS (1)
  - AGRANULOCYTOSIS [None]
